FAERS Safety Report 6353153-2 (Version None)
Quarter: 2009Q3

REPORT INFORMATION
  Report Type: 
  Country: None (occurrence: None)
  Receive Date: 20090912
  Receipt Date: 20090622
  Transmission Date: 20100115
  Serious: No
  Sender: FDA-Public Use
  Company Number: US-ABBOTT-08P-163-0455024-00

PATIENT
  Sex: Female
  Weight: 72.64 kg

DRUGS (5)
  1. HUMIRA [Suspect]
     Indication: CROHN'S DISEASE
     Route: 050
     Dates: start: 20080530
  2. FOLIC ACID [Concomitant]
     Indication: CROHN'S DISEASE
     Route: 048
     Dates: start: 20050101
  3. CYANOCOBALAMIN-TANNIN COMPLEX [Concomitant]
     Indication: CROHN'S DISEASE
     Route: 045
     Dates: start: 20040101
  4. CYCLOBENZAPRINE HCL [Concomitant]
     Indication: SPINAL OSTEOARTHRITIS
     Route: 048
     Dates: start: 19980101
  5. MARVELON [Concomitant]
     Indication: CONTRACEPTION
     Route: 048
     Dates: start: 20070101

REACTIONS (3)
  - INCORRECT DOSE ADMINISTERED [None]
  - INJECTION SITE EXTRAVASATION [None]
  - INJECTION SITE IRRITATION [None]
